FAERS Safety Report 10364722 (Version 1)
Quarter: 2014Q3

REPORT INFORMATION
  Report Type: Spontaneous
  Country: US (occurrence: None)
  Receive Date: 20140801
  Receipt Date: 20140801
  Transmission Date: 20150326
  Serious: Yes (Hospitalization)
  Sender: FDA-Public Use
  Company Number: UNT-2014-004605

PATIENT
  Age: 66 Year
  Sex: Female

DRUGS (3)
  1. ADEMPAS [Concomitant]
     Active Substance: RIOCIGUAT
  2. REMODULIN [Suspect]
     Active Substance: TREPROSTINIL
     Indication: PULMONARY ARTERIAL HYPERTENSION
     Route: 041
     Dates: start: 20130823
  3. TRACEER /01587701/ (BOSENTAN) [Concomitant]

REACTIONS (5)
  - Chest pain [None]
  - Diarrhoea [None]
  - Headache [None]
  - Hypotension [None]
  - Peripheral swelling [None]

NARRATIVE: CASE EVENT DATE: 20140711
